FAERS Safety Report 7800606-3 (Version None)
Quarter: 2011Q4

REPORT INFORMATION
  Report Type: 
  Country: None (occurrence: None)
  Receive Date: 20111006
  Receipt Date: 20111005
  Transmission Date: 20120403
  Serious: Yes (Disabling)
  Sender: FDA-Public Use
  Company Number: IE-ABBOTT-11P-229-0733795-00

PATIENT
  Sex: Female

DRUGS (1)
  1. HUMIRA [Suspect]
     Indication: MELKERSSON-ROSENTHAL SYNDROME
     Route: 058
     Dates: start: 20110604

REACTIONS (4)
  - MELKERSSON-ROSENTHAL SYNDROME [None]
  - GASTRIC DISORDER [None]
  - VIITH NERVE PARALYSIS [None]
  - RECTAL HAEMORRHAGE [None]
